FAERS Safety Report 5491618-6 (Version None)
Quarter: 2007Q4

REPORT INFORMATION
  Report Type: 
  Country: None (occurrence: None)
  Receive Date: 20071017
  Receipt Date: 20071017
  Transmission Date: 20080405
  Serious: Yes (Other)
  Sender: FDA-Public Use
  Company Number: None

PATIENT
  Age: 52 Year
  Sex: Female
  Weight: 93.8946 kg

DRUGS (2)
  1. VARENICLINE TARTRATE .5MG PFIZER [Suspect]
     Indication: SMOKING CESSATION THERAPY
     Dosage: .5MG BID PO
     Route: 048
  2. VARENICLINE TARTRATE 1MG PFIZER [Suspect]
     Indication: SMOKING CESSATION THERAPY
     Dosage: 1MG BID PO
     Route: 048

REACTIONS (1)
  - PRURITUS [None]
